FAERS Safety Report 9426493 (Version 1)
Quarter: 2013Q3

REPORT INFORMATION
  Report Type: Spontaneous
  Country: BR (occurrence: BR)
  Receive Date: 20130730
  Receipt Date: 20130730
  Transmission Date: 20140515
  Serious: Yes (Hospitalization)
  Sender: FDA-Public Use
  Company Number: BR-ASTRAZENECA-2013SE56020

PATIENT
  Age: 22548 Day
  Sex: Male
  Weight: 94 kg

DRUGS (2)
  1. CRESTOR [Suspect]
     Indication: HYPERCHOLESTEROLAEMIA
     Route: 048
     Dates: start: 2011
  2. DIOVAN [Concomitant]
     Dates: start: 2011

REACTIONS (1)
  - Myocardial infarction [Recovered/Resolved]
